FAERS Safety Report 5424834-X (Version None)
Quarter: 2007Q3

REPORT INFORMATION
  Report Type: 
  Country: None (occurrence: None)
  Receive Date: 20070824
  Receipt Date: 20070813
  Transmission Date: 20080115
  Serious: Yes (Other)
  Sender: FDA-Public Use
  Company Number: FR-JNJFOC-20070802945

PATIENT
  Age: 47 Year
  Sex: Female

DRUGS (7)
  1. REMICADE [Suspect]
  2. REMICADE [Suspect]
     Indication: SPONDYLOARTHROPATHY
  3. TRAMADOL HCL [Concomitant]
  4. DAFALGAN [Concomitant]
  5. APRANAX [Concomitant]
  6. OMEPRAZOLE [Concomitant]
  7. GAVISCON [Concomitant]

REACTIONS (9)
  - ABDOMINAL PAIN [None]
  - COUGH [None]
  - DRUG INEFFECTIVE [None]
  - EYE IRRITATION [None]
  - INFUSION RELATED REACTION [None]
  - LACRIMATION INCREASED [None]
  - PARAESTHESIA [None]
  - PHARYNGOLARYNGEAL DISCOMFORT [None]
  - URTICARIA [None]
